FAERS Safety Report 22094956 (Version 2)
Quarter: 2023Q2

REPORT INFORMATION
  Report Type: Spontaneous
  Country: FR (occurrence: FR)
  Receive Date: 20230314
  Receipt Date: 20230525
  Transmission Date: 20230721
  Serious: Yes (Hospitalization, Other)
  Sender: FDA-Public Use
  Company Number: FR-ELI_LILLY_AND_COMPANY-FR202303001492

PATIENT
  Age: 71 Year
  Sex: Female

DRUGS (3)
  1. OLUMIANT [Suspect]
     Active Substance: BARICITINIB
     Indication: Rheumatoid arthritis
     Dosage: 2 MG, DAILY
     Route: 048
     Dates: start: 202012, end: 20220520
  2. PRADAXA [Concomitant]
     Active Substance: DABIGATRAN ETEXILATE MESYLATE
     Indication: Atrial fibrillation
     Dosage: UNK UNK, UNKNOWN
     Route: 048
  3. PREDNISONE [Concomitant]
     Active Substance: PREDNISONE
     Indication: Rheumatoid arthritis
     Dosage: UNK UNK, UNKNOWN
     Route: 048

REACTIONS (1)
  - Vulval cancer [Recovered/Resolved with Sequelae]

NARRATIVE: CASE EVENT DATE: 20220301
